FAERS Safety Report 7369486-7 (Version None)
Quarter: 2011Q1

REPORT INFORMATION
  Report Type: 
  Country: None (occurrence: None)
  Receive Date: 20110323
  Receipt Date: 20110224
  Transmission Date: 20110831
  Serious: No
  Sender: FDA-Public Use
  Company Number: US-B.I. PHARMACEUTICALS,INC./RIDGEFIELD-2011-BP-06697BP

PATIENT
  Sex: Male

DRUGS (9)
  1. PRADAXA [Suspect]
     Indication: ATRIAL FIBRILLATION
     Dosage: 300 MG
     Route: 048
     Dates: start: 20110222
  2. ASPIRIN [Concomitant]
     Indication: CARDIAC DISORDER
     Route: 048
  3. MULTI-VITAMIN [Concomitant]
     Indication: CARDIAC DISORDER
     Route: 048
  4. METOPROLOL [Concomitant]
     Indication: CARDIAC DISORDER
     Dosage: 100 MG
     Route: 048
  5. PERI-COLACE [Concomitant]
     Indication: FAECES HARD
     Route: 048
  6. IRON [Concomitant]
     Dosage: 195 MG
     Route: 048
  7. LIPITOR [Concomitant]
     Indication: BLOOD CHOLESTEROL INCREASED
     Dosage: 40 MG
     Route: 048
  8. FUROSEMIDE [Suspect]
     Indication: FLUID RETENTION
     Route: 048
  9. AMIODARONE HCL [Concomitant]
     Indication: ARRHYTHMIA
     Dosage: 200 MG
     Route: 048

REACTIONS (4)
  - DIARRHOEA [None]
  - GINGIVAL PAIN [None]
  - FATIGUE [None]
  - ASTHENIA [None]
